FAERS Safety Report 21003814 (Version 1)
Quarter: 2022Q2

REPORT INFORMATION
  Report Type: Spontaneous
  Country: IT (occurrence: IT)
  Receive Date: 20220624
  Receipt Date: 20220624
  Transmission Date: 20220721
  Serious: Yes (Hospitalization)
  Sender: FDA-Public Use
  Company Number: None

PATIENT
  Age: 2 Day
  Sex: Female
  Weight: 3 kg

DRUGS (5)
  1. RALTEGRAVIR POTASSIUM [Suspect]
     Active Substance: RALTEGRAVIR POTASSIUM
     Indication: Acute HIV infection
     Dosage: 800 MILLIGRAM, QD
     Route: 064
  2. RITONAVIR [Suspect]
     Active Substance: RITONAVIR
     Indication: Acute HIV infection
     Dosage: 400 MILLIGRAM, EVERY DAY
     Route: 064
  3. RILPIVIRINE [Suspect]
     Active Substance: RILPIVIRINE
     Indication: Acute HIV infection
     Dosage: 25, QD
     Route: 064
  4. DARUNAVIR [Suspect]
     Active Substance: DARUNAVIR
     Indication: Acute HIV infection
     Dosage: 800 MILLIGRAM, QD
     Route: 064
  5. ZIDOVUDINE [Concomitant]
     Active Substance: ZIDOVUDINE
     Indication: Prophylaxis against HIV infection
     Dosage: 2.6 MILLILITER
     Route: 048
     Dates: start: 20220420, end: 20220607

REACTIONS (3)
  - Adnexa uteri cyst [Recovering/Resolving]
  - Ventricular extrasystoles [Recovering/Resolving]
  - Heart rate irregular [Recovering/Resolving]

NARRATIVE: CASE EVENT DATE: 20220422
